FAERS Safety Report 20998638 (Version 1)
Quarter: 2022Q2

REPORT INFORMATION
  Report Type: Spontaneous
  Country: US (occurrence: US)
  Receive Date: 20220623
  Receipt Date: 20220623
  Transmission Date: 20220721
  Serious: Yes (Other)
  Sender: FDA-Public Use
  Company Number: US-MYLANLABS-2022M1047681

PATIENT
  Age: 49 Year
  Sex: Male

DRUGS (6)
  1. CISPLATIN [Suspect]
     Active Substance: CISPLATIN
     Indication: Bladder cancer
     Dosage: UNK, CYCLE
     Route: 065
     Dates: start: 201910
  2. GEMCITABINE [Suspect]
     Active Substance: GEMCITABINE
     Indication: Bladder cancer
     Dosage: UNK, CYCLE
     Route: 065
     Dates: start: 201910
  3. ATEZOLIZUMAB [Suspect]
     Active Substance: ATEZOLIZUMAB
     Indication: Bladder cancer
     Dosage: 1200 MILLIGRAM, Q3W
     Route: 042
     Dates: start: 2020
  4. ENFORTUMAB VEDOTIN [Suspect]
     Active Substance: ENFORTUMAB VEDOTIN
     Indication: Bladder cancer
     Dosage: UNK
     Route: 065
     Dates: start: 202004
  5. IPILIMUMAB [Suspect]
     Active Substance: IPILIMUMAB
     Indication: Bladder cancer
     Dosage: 1 MILLIGRAM/KILOGRAM, Q3W
     Route: 065
     Dates: start: 202007
  6. NIVOLUMAB [Suspect]
     Active Substance: NIVOLUMAB
     Indication: Bladder cancer
     Dosage: 3 MILLIGRAM/KILOGRAM, Q3W
     Route: 042
     Dates: start: 202007

REACTIONS (1)
  - Drug ineffective [Unknown]

NARRATIVE: CASE EVENT DATE: 20200101
